FAERS Safety Report 16355577 (Version 1)
Quarter: 2019Q2

REPORT INFORMATION
  Report Type: Spontaneous
  Country: AU (occurrence: AU)
  Receive Date: 20190525
  Receipt Date: 20190525
  Transmission Date: 20190711
  Serious: Yes (Other)
  Sender: FDA-Public Use
  Company Number: AU-AMGEN-AUSSP2019080319

PATIENT
  Age: 65 Year
  Sex: Female

DRUGS (8)
  1. PANTOPRAZOLE [Concomitant]
     Active Substance: PANTOPRAZOLE
     Indication: GASTROOESOPHAGEAL REFLUX DISEASE
     Dosage: UNK
     Route: 048
  2. TPN [AMINO ACIDS NOS;CARBOHYDRATES NOS;MINERALS NOS;VITAMINS NOS] [Concomitant]
     Indication: GASTROINTESTINAL DISORDER
     Dosage: UNK
     Route: 042
     Dates: start: 1992
  3. SPIRONOLACTONE. [Concomitant]
     Active Substance: SPIRONOLACTONE
     Indication: ASCITES
     Dosage: UNK
     Route: 048
  4. SODIBIC [Concomitant]
     Indication: ACIDOSIS
     Dosage: UNK
     Route: 048
  5. XIFAXAN [Concomitant]
     Active Substance: RIFAXIMIN
     Indication: PROPHYLAXIS
     Dosage: UNK
     Route: 048
  6. CALCIUM CHLORIDE. [Concomitant]
     Active Substance: CALCIUM CHLORIDE
     Indication: HYPOCALCAEMIA
  7. PROLIA [Suspect]
     Active Substance: DENOSUMAB
     Indication: OSTEOPOROSIS
     Dosage: UNK
     Route: 058
     Dates: start: 20190305, end: 20190305
  8. GASTRO-STOP [Concomitant]
     Active Substance: LOPERAMIDE
     Dosage: UNK
     Route: 048
     Dates: start: 1992

REACTIONS (7)
  - Pancytopenia [Recovering/Resolving]
  - Gastroenteritis [Recovering/Resolving]
  - Hypocalcaemia [Recovering/Resolving]
  - Chills [Recovering/Resolving]
  - Blood lactic acid increased [Recovering/Resolving]
  - Systemic inflammatory response syndrome [Recovered/Resolved]
  - Hypotension [Recovering/Resolving]

NARRATIVE: CASE EVENT DATE: 20190311
